FAERS Safety Report 5817131-1 (Version None)
Quarter: 2008Q3

REPORT INFORMATION
  Report Type: 
  Country: None (occurrence: None)
  Receive Date: 20080722
  Receipt Date: 20080711
  Transmission Date: 20090109
  Serious: Yes (Other)
  Sender: FDA-Public Use
  Company Number: US-ROCHE-552274

PATIENT
  Sex: Male
  Weight: 83.9 kg

DRUGS (3)
  1. ACCUTANE [Suspect]
     Dosage: ONE ON ODD DAYS AND TWO ON EVEN DAYS.
     Route: 065
     Dates: start: 19991014, end: 20000118
  2. ACCUTANE [Suspect]
     Dosage: DOSE INCREASED TO 40 MG, TWO EVERY DAY
     Route: 065
     Dates: start: 20000118, end: 20000328
  3. IBUPROFEN [Concomitant]
     Dosage: FREQ: EVERY 2 MONTHS

REACTIONS (11)
  - CHOLANGITIS SCLEROSING [None]
  - CROHN'S DISEASE [None]
  - DIARRHOEA [None]
  - INFLAMMATORY BOWEL DISEASE [None]
  - IRON DEFICIENCY ANAEMIA [None]
  - LIP SWELLING [None]
  - RASH PRURITIC [None]
  - RASH PUSTULAR [None]
  - SEASONAL ALLERGY [None]
  - UPPER RESPIRATORY TRACT INFECTION [None]
  - URTICARIA [None]
